FAERS Safety Report 24228989 (Version 2)
Quarter: 2024Q3

REPORT INFORMATION
  Report Type: Spontaneous
  Country: CA (occurrence: None)
  Receive Date: 20240820
  Receipt Date: 20240916
  Transmission Date: 20241017
  Serious: Yes (Hospitalization, Disabling, Congenital Anomaly, Other)
  Sender: ASTRAZENECA
  Company Number: 2024A186926

PATIENT
  Age: 80 Year
  Sex: Male
  Weight: 89 kg

DRUGS (65)
  1. ALVESCO [Suspect]
     Active Substance: CICLESONIDE
     Indication: Asthma
  2. CICLESONIDE [Suspect]
     Active Substance: CICLESONIDE
     Indication: Asthma
  3. BUDESONIDE\FORMOTEROL [Suspect]
     Active Substance: BUDESONIDE\FORMOTEROL
     Indication: Asthma
  4. BUDESONIDE\FORMOTEROL [Suspect]
     Active Substance: BUDESONIDE\FORMOTEROL
     Indication: Asthma
  5. BUDESONIDE [Suspect]
     Active Substance: BUDESONIDE
     Indication: Product used for unknown indication
  6. BUDESONIDE [Suspect]
     Active Substance: BUDESONIDE
     Indication: Asthma
  7. BUDESONIDE [Suspect]
     Active Substance: BUDESONIDE
     Indication: Product used for unknown indication
  8. BUDESONIDE [Suspect]
     Active Substance: BUDESONIDE
     Indication: Asthma
  9. BUDESONIDE [Suspect]
     Active Substance: BUDESONIDE
     Indication: Product used for unknown indication
  10. BUDESONIDE [Suspect]
     Active Substance: BUDESONIDE
     Indication: Asthma
  11. BUDESONIDE [Suspect]
     Active Substance: BUDESONIDE
     Indication: Product used for unknown indication
  12. BUDESONIDE [Suspect]
     Active Substance: BUDESONIDE
     Indication: Asthma
  13. BUDESONIDE [Suspect]
     Active Substance: BUDESONIDE
     Indication: Product used for unknown indication
  14. BUDESONIDE [Suspect]
     Active Substance: BUDESONIDE
     Indication: Asthma
  15. RAMIPRIL [Suspect]
     Active Substance: RAMIPRIL
     Indication: Prophylaxis
     Route: 048
  16. RAMIPRIL [Suspect]
     Active Substance: RAMIPRIL
     Indication: Asthma
     Route: 048
  17. RAMIPRIL [Suspect]
     Active Substance: RAMIPRIL
     Indication: Prophylaxis
  18. RAMIPRIL [Suspect]
     Active Substance: RAMIPRIL
     Indication: Asthma
  19. ROSUVASTATIN [Suspect]
     Active Substance: ROSUVASTATIN\ROSUVASTATIN CALCIUM
     Indication: Product used for unknown indication
  20. ROSUVASTATIN [Suspect]
     Active Substance: ROSUVASTATIN\ROSUVASTATIN CALCIUM
     Indication: Asthma
  21. ROSUVASTATIN [Suspect]
     Active Substance: ROSUVASTATIN\ROSUVASTATIN CALCIUM
     Indication: Product used for unknown indication
  22. ROSUVASTATIN [Suspect]
     Active Substance: ROSUVASTATIN\ROSUVASTATIN CALCIUM
     Indication: Asthma
  23. SYMBICORT [Suspect]
     Active Substance: BUDESONIDE\FORMOTEROL FUMARATE DIHYDRATE
     Indication: Asthma
  24. INFLUENZA VIRUS VACCINE [Suspect]
     Active Substance: INFLUENZA VIRUS VACCINE
     Indication: Prophylaxis
     Route: 061
  25. ACETYLCYSTEINE [Suspect]
     Active Substance: ACETYLCYSTEINE
     Indication: Product used for unknown indication
  26. ASPIRIN [Suspect]
     Active Substance: ASPIRIN
     Indication: Product used for unknown indication
  27. ACLIDINIUM BROMIDE [Suspect]
     Active Substance: ACLIDINIUM BROMIDE
     Indication: Product used for unknown indication
  28. ACLIDINIUM BROMIDE [Suspect]
     Active Substance: ACLIDINIUM BROMIDE
     Indication: Product used for unknown indication
  29. ALBUTEROL SULFATE [Suspect]
     Active Substance: ALBUTEROL SULFATE
     Indication: Asthma prophylaxis
  30. ALBUTEROL SULFATE [Suspect]
     Active Substance: ALBUTEROL SULFATE
     Indication: Asthma prophylaxis
  31. AMLODIPINE [Suspect]
     Active Substance: AMLODIPINE BESYLATE
     Indication: Asthma
  32. ASACOL [Suspect]
     Active Substance: MESALAMINE
     Indication: Product used for unknown indication
  33. AZITHROMYCIN [Suspect]
     Active Substance: AZITHROMYCIN
     Indication: Product used for unknown indication
  34. DOXYCYCLINE [Suspect]
     Active Substance: DOXYCYCLINE\DOXYCYCLINE HYCLATE
     Indication: Product used for unknown indication
  35. FINASTERIDE [Suspect]
     Active Substance: FINASTERIDE
     Indication: Product used for unknown indication
  36. LEVOFLOXACIN [Suspect]
     Active Substance: LEVOFLOXACIN
     Indication: Product used for unknown indication
  37. LEVOFLOXACIN [Suspect]
     Active Substance: LEVOFLOXACIN
     Indication: Product used for unknown indication
  38. LEVOFLOXACIN [Suspect]
     Active Substance: LEVOFLOXACIN
     Indication: Product used for unknown indication
  39. LEVOFLOXACIN HEMIHYDRATE [Suspect]
     Active Substance: LEVOFLOXACIN
     Indication: Product used for unknown indication
  40. LYRICA [Suspect]
     Active Substance: PREGABALIN
     Indication: Product used for unknown indication
  41. MELATONIN [Suspect]
     Active Substance: MELATONIN
     Indication: Product used for unknown indication
  42. MESALAMINE [Suspect]
     Active Substance: MESALAMINE
     Indication: Product used for unknown indication
  43. MORNIFLUMATE [Suspect]
     Active Substance: MORNIFLUMATE
     Indication: Product used for unknown indication
  44. NAPROXEN [Suspect]
     Active Substance: NAPROXEN
     Indication: Product used for unknown indication
  45. PNEUMOCOCCAL VACCINE POLYVALENT NOS [Suspect]
     Active Substance: PNEUMOCOCCAL VACCINE, POLYVALENT
     Indication: Prophylaxis
  46. PNEUMOCOCCAL VACCINE POLYVALENT NOS [Suspect]
     Active Substance: PNEUMOCOCCAL VACCINE, POLYVALENT
     Indication: Product used for unknown indication
  47. PNEUMOCOCCAL VACCINE POLYVALENT NOS [Suspect]
     Active Substance: PNEUMOCOCCAL VACCINE, POLYVALENT
     Indication: Immunisation
  48. PNEUMOCOCCAL VACCINE POLYVALENT NOS [Suspect]
     Active Substance: PNEUMOCOCCAL VACCINE, POLYVALENT
     Indication: Prophylaxis
  49. PNEUMOCOCCAL VACCINE POLYVALENT NOS [Suspect]
     Active Substance: PNEUMOCOCCAL VACCINE, POLYVALENT
     Indication: Product used for unknown indication
  50. PNEUMOCOCCAL VACCINE POLYVALENT NOS [Suspect]
     Active Substance: PNEUMOCOCCAL VACCINE, POLYVALENT
     Indication: Immunisation
  51. PNEUMOCOCCAL VACCINE POLYVALENT NOS [Suspect]
     Active Substance: PNEUMOCOCCAL VACCINE, POLYVALENT
     Indication: Prophylaxis
  52. PNEUMOCOCCAL VACCINE POLYVALENT NOS [Suspect]
     Active Substance: PNEUMOCOCCAL VACCINE, POLYVALENT
     Indication: Product used for unknown indication
  53. PNEUMOCOCCAL VACCINE POLYVALENT NOS [Suspect]
     Active Substance: PNEUMOCOCCAL VACCINE, POLYVALENT
     Indication: Immunisation
  54. PREDNISONE [Suspect]
     Active Substance: PREDNISONE
     Indication: Asthma
  55. PREVNAR 13 [Suspect]
     Active Substance: STREPTOCOCCUS PNEUMONIAE TYPE 1 CAPSULAR POLYSACCHARIDE DIPHTHERIA CRM197 PROTEIN CONJUGATE ANTIGEN\
     Indication: Prophylaxis
     Route: 030
  56. PREVNAR 13 [Suspect]
     Active Substance: STREPTOCOCCUS PNEUMONIAE TYPE 1 CAPSULAR POLYSACCHARIDE DIPHTHERIA CRM197 PROTEIN CONJUGATE ANTIGEN\
     Indication: Immunisation
     Route: 030
  57. PREVNAR 13 [Suspect]
     Active Substance: STREPTOCOCCUS PNEUMONIAE TYPE 1 CAPSULAR POLYSACCHARIDE DIPHTHERIA CRM197 PROTEIN CONJUGATE ANTIGEN\
     Indication: Prophylaxis
  58. PREVNAR 13 [Suspect]
     Active Substance: STREPTOCOCCUS PNEUMONIAE TYPE 1 CAPSULAR POLYSACCHARIDE DIPHTHERIA CRM197 PROTEIN CONJUGATE ANTIGEN\
     Indication: Immunisation
  59. ALBUTEROL SULFATE [Suspect]
     Active Substance: ALBUTEROL SULFATE
     Indication: Asthma
  60. SPIRIVA [Suspect]
     Active Substance: TIOTROPIUM BROMIDE MONOHYDRATE
     Indication: Asthma
  61. SPIRIVA [Suspect]
     Active Substance: TIOTROPIUM BROMIDE MONOHYDRATE
     Indication: Asthma
  62. TAMSULOSIN HYDROCHLORIDE [Suspect]
     Active Substance: TAMSULOSIN HYDROCHLORIDE
     Indication: Product used for unknown indication
  63. PANTOPRAZOLE SODIUM [Suspect]
     Active Substance: PANTOPRAZOLE SODIUM
     Indication: Product used for unknown indication
  64. PANTOPRAZOLE SODIUM [Suspect]
     Active Substance: PANTOPRAZOLE SODIUM
     Indication: Product used for unknown indication
  65. PREGABALIN [Suspect]
     Active Substance: PREGABALIN
     Indication: Product used for unknown indication

REACTIONS (23)
  - Asthma [Unknown]
  - Benign prostatic hyperplasia [Unknown]
  - Breath sounds abnormal [Unknown]
  - Bronchiectasis [Unknown]
  - Chronic obstructive pulmonary disease [Unknown]
  - Congenital hiatus hernia [Unknown]
  - Coronary artery disease [Unknown]
  - Dyspnoea [Unknown]
  - Dyspnoea exertional [Unknown]
  - Full blood count abnormal [Unknown]
  - Gastrooesophageal reflux disease [Unknown]
  - Hypercholesterolaemia [Unknown]
  - Hypertension [Unknown]
  - Joint injury [Unknown]
  - Loss of personal independence in daily activities [Unknown]
  - Malignant melanoma in situ [Unknown]
  - Micturition urgency [Unknown]
  - Obstructive airways disorder [Unknown]
  - Off label use [Unknown]
  - Productive cough [Unknown]
  - Therapeutic product effect incomplete [Unknown]
  - Transient ischaemic attack [Unknown]
  - Wheezing [Unknown]
